FAERS Safety Report 10158883 (Version 1)
Quarter: 2014Q2

REPORT INFORMATION
  Report Type: Spontaneous
  Country: CA (occurrence: CA)
  Receive Date: 20140508
  Receipt Date: 20140508
  Transmission Date: 20141212
  Serious: Yes (Other)
  Sender: FDA-Public Use
  Company Number: CA-009507513-1405CAN001826

PATIENT
  Age: 12 Year
  Sex: Female

DRUGS (4)
  1. NASONEX [Suspect]
     Dosage: 50 MICROGRAM, BID
     Route: 048
  2. ZENHALE [Suspect]
     Dosage: 2 DF, BID
     Route: 065
  3. BRICANYL TURBUHALER [Concomitant]
  4. EPIPEN JR [Concomitant]
     Route: 030

REACTIONS (3)
  - Asthenia [Recovered/Resolved]
  - Blood cortisol decreased [Recovered/Resolved]
  - Fatigue [Recovered/Resolved]
